FAERS Safety Report 10932785 (Version 1)
Quarter: 2015Q1

REPORT INFORMATION
  Report Type: Spontaneous
  Country: US (occurrence: None)
  Receive Date: 20150319
  Receipt Date: 20150319
  Transmission Date: 20150721
  Serious: No
  Sender: FDA-Public Use
  Company Number: 2014CT000237

PATIENT
  Age: 66 Year
  Sex: Female
  Weight: 113.4 kg

DRUGS (1)
  1. KORLYM [Suspect]
     Active Substance: MIFEPRISTONE
     Indication: MENINGEAL NEOPLASM
     Route: 048
     Dates: start: 20141121

REACTIONS (2)
  - Alopecia [None]
  - Off label use [None]

NARRATIVE: CASE EVENT DATE: 20141223
